FAERS Safety Report 4947017-6 (Version None)
Quarter: 2006Q1

REPORT INFORMATION
  Report Type: 
  Country: None (occurrence: None)
  Receive Date: 20060127
  Receipt Date: 20051202
  Transmission Date: 20060701
  Serious: Yes (Other)
  Sender: FDA-Public Use
  Company Number: 2005163638

PATIENT
  Age: 80 Year
  Sex: Female

DRUGS (4)
  1. LYRICA [Suspect]
     Indication: POST HERPETIC NEURALGIA
  2. NEXIUM [Concomitant]
  3. DURAGESIC-100 [Concomitant]
  4. LIDODERM [Concomitant]

REACTIONS (2)
  - HYPOTENSION [None]
  - LIVER FUNCTION TEST ABNORMAL [None]
